FAERS Safety Report 5068160-X (Version None)
Quarter: 2006Q3

REPORT INFORMATION
  Report Type: 
  Country: None (occurrence: None)
  Receive Date: 20060731
  Receipt Date: 20060718
  Transmission Date: 20061208
  Serious: Yes (Death)
  Sender: FDA-Public Use
  Company Number: US017955

PATIENT
  Age: 27 Year
  Sex: Male

DRUGS (4)
  1. ACTIQ [Suspect]
     Indication: PAIN
     Dates: start: 20051104
  2. ACTIQ [Suspect]
     Indication: PAIN
     Dosage: 4000 UG ONCE BUCCAL
     Route: 002
     Dates: end: 20060411
  3. AMBIEN [Concomitant]
  4. PERCOCET [Concomitant]

REACTIONS (1)
  - DEATH [None]
